FAERS Safety Report 20559133 (Version 6)
Quarter: 2023Q1

REPORT INFORMATION
  Report Type: Report from Study
  Country: BE (occurrence: BE)
  Receive Date: 20220307
  Receipt Date: 20230302
  Transmission Date: 20230417
  Serious: Yes (Hospitalization)
  Sender: FDA-Public Use
  Company Number: BE-IPSEN Group, Research and Development-2022-00910

PATIENT

DRUGS (13)
  1. CABOZANTINIB [Suspect]
     Active Substance: CABOZANTINIB
     Indication: Renal cell carcinoma
     Dosage: 60 MG, QD
     Route: 048
     Dates: start: 20211216, end: 20220106
  2. CABOZANTINIB [Suspect]
     Active Substance: CABOZANTINIB
     Dosage: 40 MG, QD
     Route: 048
     Dates: start: 20220107, end: 20220120
  3. CABOZANTINIB [Suspect]
     Active Substance: CABOZANTINIB
     Dosage: 20 MG, QD
     Route: 048
     Dates: start: 20220210, end: 20220224
  4. METFORMIN HYDROCHLORIDE [Concomitant]
     Active Substance: METFORMIN HYDROCHLORIDE
     Indication: Diabetes mellitus
     Dosage: 1/2 CO, QD (MORNING)
     Dates: start: 20210327
  5. TAMSULOSIN HYDROCHLORIDE [Concomitant]
     Active Substance: TAMSULOSIN HYDROCHLORIDE
     Indication: Benign prostatic hyperplasia
     Dosage: 0.4 MG, QD (BEFORE FEB-2020 - ONGOING)
  6. CORDARONE [Concomitant]
     Active Substance: AMIODARONE HYDROCHLORIDE
     Indication: Arrhythmia
     Dosage: 200 1/2 CO, QD (STRENGTH: 200 UNITS NOT REPORTED)
     Dates: start: 20200228
  7. XARELTO [Concomitant]
     Active Substance: RIVAROXABAN
     Indication: Arrhythmia
     Dosage: 15 MG, QD (BEFORE FEB-2020 - ONGOING)
  8. LEVOTHYROXINE SODIUM [Concomitant]
     Active Substance: LEVOTHYROXINE SODIUM
     Indication: Hypothyroidism
     Dosage: 175 UG, DAILY
     Dates: start: 20200723
  9. LOSARTAN POTASSIUM [Concomitant]
     Active Substance: LOSARTAN POTASSIUM
     Indication: Hypertension
     Dosage: 1/2 CO, DAILY (ONGOING) (STRENGTH: 100 MG)
     Dates: start: 20210308
  10. LOSARTAN POTASSIUM [Concomitant]
     Active Substance: LOSARTAN POTASSIUM
     Dosage: 100 MG, QD
     Dates: start: 20211230, end: 20220122
  11. LOSARTAN POTASSIUM [Concomitant]
     Active Substance: LOSARTAN POTASSIUM
     Dosage: 50 MG, QD
     Dates: start: 20220122, end: 20220215
  12. CHOLECALCIFEROL [Concomitant]
     Active Substance: CHOLECALCIFEROL
     Dosage: 1 CO, /2 WEEKS (ONGOING)
     Dates: start: 20210714
  13. MAGNESIUM [Concomitant]
     Active Substance: MAGNESIUM
     Dosage: 1 CO, DAILY (ONGOING)
     Dates: start: 20210819

REACTIONS (19)
  - Left ventricular dysfunction [Recovered/Resolved]
  - Cell death [Recovered/Resolved]
  - Condition aggravated [Not Recovered/Not Resolved]
  - Dyspnoea [Recovered/Resolved]
  - Blood creatinine increased [Not Recovered/Not Resolved]
  - Muscle spasms [Recovered/Resolved]
  - Cough [Recovered/Resolved]
  - Hypertension [Recovered/Resolved]
  - Decreased appetite [Recovered/Resolved]
  - Fatigue [Recovered/Resolved]
  - Nausea [Recovered/Resolved]
  - Arthralgia [Recovered/Resolved]
  - Constipation [Recovered/Resolved]
  - Rash [Not Recovered/Not Resolved]
  - Thrombocytopenia [Recovering/Resolving]
  - Hypothyroidism [Recovered/Resolved]
  - Abdominal pain upper [Recovered/Resolved]
  - Vomiting [Recovered/Resolved]
  - Diarrhoea [Recovered/Resolved]

NARRATIVE: CASE EVENT DATE: 20211201
